FAERS Safety Report 10919331 (Version 1)
Quarter: 2015Q1

REPORT INFORMATION
  Report Type: Spontaneous
  Country: US (occurrence: US)
  Receive Date: 20150316
  Receipt Date: 20150316
  Transmission Date: 20150721
  Serious: Yes (Hospitalization)
  Sender: FDA-Public Use
  Company Number: PHHY2015US029571

PATIENT
  Age: 92 Year
  Sex: Male

DRUGS (1)
  1. ACETYLSALICYLIC ACID [Suspect]
     Active Substance: ASPIRIN
     Indication: ARTHRITIS
     Dosage: 650 MG, QID
     Route: 065

REACTIONS (6)
  - Melaena [Unknown]
  - Gastrointestinal tract irritation [Unknown]
  - Pallor [Unknown]
  - Haematemesis [Unknown]
  - Abdominal discomfort [Unknown]
  - Blood pressure decreased [Unknown]
